FAERS Safety Report 25092950 (Version 1)
Quarter: 2025Q1

REPORT INFORMATION
  Report Type: Spontaneous
  Country: US (occurrence: US)
  Receive Date: 20250319
  Receipt Date: 20250319
  Transmission Date: 20250408
  Serious: No
  Sender: DR REDDYS
  Company Number: US-DRL-USA-USA/2025/03/003718

PATIENT
  Age: 60 Year
  Sex: Male

DRUGS (2)
  1. PREGABALIN [Suspect]
     Active Substance: PREGABALIN
     Indication: Hiccups
  2. PREGABALIN [Suspect]
     Active Substance: PREGABALIN

REACTIONS (3)
  - Somnolence [Recovered/Resolved]
  - Brain fog [Recovered/Resolved]
  - Drug effective for unapproved indication [Unknown]
